FAERS Safety Report 6905804-9 (Version None)
Quarter: 2010Q3

REPORT INFORMATION
  Report Type: 
  Country: None (occurrence: None)
  Receive Date: 20100802
  Receipt Date: 20100802
  Transmission Date: 20110219
  Serious: Yes (Other)
  Sender: FDA-Public Use
  Company Number: None

PATIENT
  Age: 62 Year
  Sex: Female
  Weight: 65.7716 kg

DRUGS (7)
  1. TRAZODONE HCL [Suspect]
     Indication: INSOMNIA
     Dosage: 2 TABLETS ONCE
     Dates: start: 20100526
  2. ZYDONE [Concomitant]
  3. XANAX [Concomitant]
  4. TIAZAC [Concomitant]
  5. PREVACID [Concomitant]
  6. NITROGLYCERIN [Concomitant]
  7. MECLIZINE [Concomitant]

REACTIONS (3)
  - CHOKING [None]
  - CONFUSIONAL STATE [None]
  - PARALYSIS [None]
